FAERS Safety Report 12490291 (Version 1)
Quarter: 2016Q2

REPORT INFORMATION
  Report Type: Spontaneous
  Country: FR (occurrence: FR)
  Receive Date: 20160622
  Receipt Date: 20160622
  Transmission Date: 20160815
  Serious: Yes (Hospitalization)
  Sender: FDA-Public Use
  Company Number: FR-ASTRAZENECA-2016SE66454

PATIENT
  Age: 25946 Day
  Sex: Male

DRUGS (13)
  1. TAFINLAR [Concomitant]
     Active Substance: DABRAFENIB MESYLATE
     Dates: start: 201410, end: 20160524
  2. TRAMADOL. [Concomitant]
     Active Substance: TRAMADOL
     Dosage: ON DEMAND
     Route: 048
  3. TAFINLAR [Concomitant]
     Active Substance: DABRAFENIB MESYLATE
     Dates: start: 20160601
  4. CRESTOR [Suspect]
     Active Substance: ROSUVASTATIN CALCIUM
     Indication: DYSLIPIDAEMIA
     Route: 048
     Dates: end: 20160524
  5. FORTZAAR [Suspect]
     Active Substance: HYDROCHLOROTHIAZIDE\LOSARTAN POTASSIUM
     Indication: HYPERTENSION
     Dosage: 100 MG + 12.5 MG, 1 DF DAILY
     Route: 048
     Dates: end: 201605
  6. ALLOPURINOL. [Concomitant]
     Active Substance: ALLOPURINOL
     Route: 048
  7. PREVISCAN [Suspect]
     Active Substance: FLUINDIONE
     Indication: ATRIAL FIBRILLATION
     Dosage: 0.75 TABLETS OR 1 TABLET EACH OTHER DAY
     Route: 048
     Dates: end: 20160520
  8. SPASFON [Concomitant]
     Active Substance: PHLOROGLUCINOL
     Dosage: ON DEMAND
     Route: 048
  9. FORTZAAR [Suspect]
     Active Substance: HYDROCHLOROTHIAZIDE\LOSARTAN POTASSIUM
     Indication: HYPERTENSION
     Dosage: 100 MG + 25 MG, 1 DF DAILY
     Route: 048
     Dates: start: 201605, end: 20160524
  10. DETENSIEL [Concomitant]
     Active Substance: BISOPROLOL FUMARATE
     Route: 048
  11. PARACETAMOL [Concomitant]
     Active Substance: ACETAMINOPHEN
     Dosage: ON DEMAND
     Route: 048
  12. METFORMIN [Concomitant]
     Active Substance: METFORMIN HYDROCHLORIDE
     Route: 048
     Dates: start: 201602
  13. SMECTA [Concomitant]
     Active Substance: MONTMORILLONITE
     Dosage: ON DEMAND
     Route: 048

REACTIONS (1)
  - Immune thrombocytopenic purpura [Recovering/Resolving]

NARRATIVE: CASE EVENT DATE: 20160520
